FAERS Safety Report 9192787 (Version 2)
Quarter: 2013Q2

REPORT INFORMATION
  Report Type: Spontaneous
  Country: US (occurrence: None)
  Receive Date: 20120703
  Receipt Date: 20121031
  Transmission Date: 20140414
  Serious: Yes (Other)
  Sender: FDA-Public Use
  Company Number: PHEH2012US007089

PATIENT
  Age: 41 Year
  Sex: Female
  Weight: 93 kg

DRUGS (10)
  1. GILENYA [Suspect]
     Indication: MULTIPLE SCLEROSIS
     Route: 048
     Dates: start: 20120313
  2. NEURONTIN (GABAPENTIN) [Concomitant]
  3. BEXTRA (VALDECOXIB) [Concomitant]
  4. SONATA (ZALEPLON) [Concomitant]
  5. MULTIVITAMINS (ASCORBIC ACID, ERGOCALCIFEROL, FOLIC ACID, NICOTINAMIDE, PANTHENOL, RETINOL, RIBOFLAVIN, THIAMINE HYDROCHLORIDE) [Concomitant]
  6. VITAMIN B12 (CYANOCOBALAMIN) [Concomitant]
  7. BIOTIN (BIOTIN) [Concomitant]
  8. LYRICA (PREGABALIN) [Concomitant]
  9. ZANAFLEX (TIZANIDINE HYDROCHLORIDE) [Concomitant]
  10. COREG (CARVEDILOL) [Concomitant]

REACTIONS (4)
  - Decreased appetite [None]
  - Muscular weakness [None]
  - Vision blurred [None]
  - Dysgeusia [None]
